FAERS Safety Report 8997818 (Version 14)
Quarter: 2013Q4

REPORT INFORMATION
  Report Type: Spontaneous
  Country: US (occurrence: US)
  Receive Date: 20130104
  Receipt Date: 20131004
  Transmission Date: 20140711
  Serious: Yes (Hospitalization)
  Sender: FDA-Public Use
  Company Number: US-GLAXOSMITHKLINE-A0975990A

PATIENT
  Age: 43 Year
  Sex: Female

DRUGS (3)
  1. FLOLAN [Suspect]
     Indication: PULMONARY ARTERIAL HYPERTENSION
     Dosage: 20NGKM CONTINUOUS
     Route: 042
     Dates: start: 20090428, end: 201309
  2. VELETRI [Suspect]
     Indication: PULMONARY ARTERIAL HYPERTENSION
     Route: 065
     Dates: start: 201309
  3. LASIX [Concomitant]

REACTIONS (34)
  - Syncope [Unknown]
  - Pneumonia [Unknown]
  - Device related infection [Unknown]
  - Haemoptysis [Unknown]
  - Abdominal pain upper [Unknown]
  - Disorientation [Unknown]
  - Fibromyalgia [Unknown]
  - Headache [Unknown]
  - Visual acuity reduced [Unknown]
  - Chest pain [Unknown]
  - Dyspnoea exertional [Unknown]
  - Catheter site pain [Not Recovered/Not Resolved]
  - Pain [Unknown]
  - Feeling abnormal [Unknown]
  - Migraine [Not Recovered/Not Resolved]
  - Abdominal pain [Not Recovered/Not Resolved]
  - Road traffic accident [Unknown]
  - Cardiac failure congestive [Unknown]
  - Dehydration [Unknown]
  - Nasopharyngitis [Unknown]
  - Viral infection [Unknown]
  - Malaise [Unknown]
  - Surgery [Unknown]
  - Dyspnoea [Unknown]
  - Cough [Unknown]
  - Diarrhoea [Unknown]
  - Chills [Unknown]
  - Nausea [Unknown]
  - Vomiting [Unknown]
  - Hot flush [Unknown]
  - Rash [Unknown]
  - Decreased appetite [Unknown]
  - Haemoptysis [Unknown]
  - Oxygen saturation decreased [Unknown]
